FAERS Safety Report 17826565 (Version 1)
Quarter: 2020Q2

REPORT INFORMATION
  Report Type: Spontaneous
  Country: US (occurrence: US)
  Receive Date: 20200527
  Receipt Date: 20200527
  Transmission Date: 20200714
  Serious: No
  Sender: FDA-Public Use
  Company Number: US-CIPLA LTD.-2020US02288

PATIENT

DRUGS (1)
  1. DICLOFENAC [Suspect]
     Active Substance: DICLOFENAC
     Indication: PAIN IN EXTREMITY
     Dosage: UNK
     Route: 061
     Dates: start: 20200325, end: 202003

REACTIONS (12)
  - Off label use [Unknown]
  - Drug ineffective for unapproved indication [Unknown]
  - Product formulation issue [Unknown]
  - Headache [Unknown]
  - Accidental exposure to product [Unknown]
  - Product quality issue [Unknown]
  - Product packaging issue [Unknown]
  - Product container issue [Unknown]
  - Malaise [Unknown]
  - Product odour abnormal [Unknown]
  - Product physical consistency issue [Unknown]
  - Product substitution issue [Unknown]

NARRATIVE: CASE EVENT DATE: 202003
